FAERS Safety Report 17070335 (Version 6)
Quarter: 2020Q1

REPORT INFORMATION
  Report Type: Report from Study
  Country: None (occurrence: CA)
  Receive Date: 20191125
  Receipt Date: 20200313
  Transmission Date: 20200409
  Serious: No
  Sender: FDA-Public Use
  Company Number: CA-ABBVIE-19K-028-2973015-00

PATIENT
  Sex: Female

DRUGS (5)
  1. LUPRON DEPOT [Suspect]
     Active Substance: LEUPROLIDE ACETATE
     Indication: ENDOMETRIOSIS
     Route: 030
     Dates: start: 20190920
  2. LUPRON DEPOT [Suspect]
     Active Substance: LEUPROLIDE ACETATE
     Route: 030
  3. LUPRON DEPOT [Suspect]
     Active Substance: LEUPROLIDE ACETATE
     Route: 030
  4. LUPRON DEPOT [Suspect]
     Active Substance: LEUPROLIDE ACETATE
     Route: 030
  5. LUPRON DEPOT [Suspect]
     Active Substance: LEUPROLIDE ACETATE
     Route: 030

REACTIONS (14)
  - Breast pain [Not Recovered/Not Resolved]
  - Polymenorrhoea [Unknown]
  - Increased appetite [Unknown]
  - Headache [Recovered/Resolved]
  - Headache [Recovered/Resolved]
  - Fatigue [Unknown]
  - Polymenorrhoea [Recovered/Resolved]
  - Abdominal distension [Unknown]
  - Vulvovaginal dryness [Not Recovered/Not Resolved]
  - Menstrual disorder [Unknown]
  - Fungal infection [Not Recovered/Not Resolved]
  - Herpes virus infection [Unknown]
  - Metrorrhagia [Unknown]
  - Headache [Unknown]

NARRATIVE: CASE EVENT DATE: 2019
